FAERS Safety Report 7099796-2 (Version None)
Quarter: 2010Q4

REPORT INFORMATION
  Report Type: 
  Country: None (occurrence: None)
  Receive Date: 20101112
  Receipt Date: 20101108
  Transmission Date: 20110411
  Serious: Yes (Other)
  Sender: FDA-Public Use
  Company Number: NZ-SANOFI-AVENTIS-2010SA067478

PATIENT
  Age: 18 Year
  Sex: Male

DRUGS (1)
  1. LANTUS [Suspect]

REACTIONS (1)
  - DEEP VEIN THROMBOSIS [None]
